FAERS Safety Report 5625042-X (Version None)
Quarter: 2008Q1

REPORT INFORMATION
  Report Type: 
  Country: None (occurrence: None)
  Receive Date: 20080213
  Receipt Date: 20080201
  Transmission Date: 20080703
  Serious: Yes (Hospitalization)
  Sender: FDA-Public Use
  Company Number: CA-ELI_LILLY_AND_COMPANY-CA200712001886

PATIENT
  Age: 89 Year
  Sex: Female

DRUGS (4)
  1. FORTEO [Suspect]
     Indication: OSTEOPOROSIS
     Dosage: 20 UG, DAILY (1/D)
     Route: 058
     Dates: start: 20070709
  2. CELEBREX [Concomitant]
  3. DURAGESIC-100 [Concomitant]
  4. CALCIA [Concomitant]

REACTIONS (3)
  - CELLULITIS [None]
  - ECZEMA [None]
  - TINEA PEDIS [None]
